FAERS Safety Report 7451851-0 (Version None)
Quarter: 2011Q2

REPORT INFORMATION
  Report Type: 
  Country: None (occurrence: None)
  Receive Date: 20110502
  Receipt Date: 20100518
  Transmission Date: 20111010
  Serious: No
  Sender: FDA-Public Use
  Company Number: US-ASTRAZENECA-2010SE22858

PATIENT
  Age: 32 Year
  Sex: Male
  Weight: 168 kg

DRUGS (3)
  1. NEXIUM [Suspect]
     Indication: GASTROOESOPHAGEAL REFLUX DISEASE
     Route: 048
     Dates: start: 20090401
  2. LORAZEPAM [Concomitant]
  3. NEXIUM [Suspect]
     Indication: GASTROINTESTINAL PAIN
     Route: 048
     Dates: start: 20090401

REACTIONS (3)
  - ABDOMINAL PAIN UPPER [None]
  - DRUG INEFFECTIVE [None]
  - DRUG DOSE OMISSION [None]
